FAERS Safety Report 5984759-8 (Version None)
Quarter: 2008Q4

REPORT INFORMATION
  Report Type: 
  Country: None (occurrence: None)
  Receive Date: 20081208
  Receipt Date: 20081111
  Transmission Date: 20090506
  Serious: No
  Sender: FDA-Public Use
  Company Number: US-B.I. PHARMACEUTICALS,INC./RIDGEFIELD-2008-BP-17169BP

PATIENT
  Sex: Female

DRUGS (4)
  1. SPIRIVA [Suspect]
     Indication: CHRONIC OBSTRUCTIVE PULMONARY DISEASE
     Dates: start: 20050601
  2. ATROVENT [Concomitant]
     Indication: DYSPNOEA
  3. XOPENOX NEBULIZER [Concomitant]
     Indication: DYSPNOEA
  4. XOPONOX INHALER [Concomitant]
     Indication: DYSPNOEA

REACTIONS (1)
  - HYPERSENSITIVITY [None]
